FAERS Safety Report 5040709-2 (Version None)
Quarter: 2006Q2

REPORT INFORMATION
  Report Type: 
  Country: None (occurrence: None)
  Receive Date: 20060629
  Receipt Date: 20060629
  Transmission Date: 20061013
  Serious: Yes (Life-Threatening)
  Sender: FDA-Public Use
  Company Number: None

PATIENT
  Sex: Male
  Weight: 15 kg

DRUGS (3)
  1. CARBOPLATIN [Suspect]
     Indication: NEUROBLASTOMA
     Dosage: 425 MG/M2 X 4 DOSES
     Dates: start: 20060301, end: 20060304
  2. ETOPOSIDE [Suspect]
     Indication: NEUROBLASTOMA
     Dosage: 338 MG/M2 X 4 DOSES
  3. MELPHALAN [Suspect]
     Dosage: 70 MG/M2 X 3 DOSES

REACTIONS (5)
  - HAEMODIALYSIS [None]
  - HEPATOMEGALY [None]
  - PARAINFLUENZAE VIRUS INFECTION [None]
  - RENAL FAILURE CHRONIC [None]
  - RESPIRATORY DISORDER [None]
